FAERS Safety Report 7929457-6 (Version None)
Quarter: 2011Q4

REPORT INFORMATION
  Report Type: 
  Country: None (occurrence: None)
  Receive Date: 20111121
  Receipt Date: 20080421
  Transmission Date: 20120403
  Serious: No
  Sender: FDA-Public Use
  Company Number: 2008BI010977

PATIENT
  Sex: Female

DRUGS (5)
  1. TYSABRI [Suspect]
     Route: 042
     Dates: start: 20080218
  2. STEROID INFUSION [Concomitant]
     Indication: PREMEDICATION
  3. ACETAMINOPHEN [Concomitant]
     Indication: PREMEDICATION
  4. BENADRYL INFUSION [Concomitant]
     Indication: PREMEDICATION
  5. TYSABRI [Suspect]
     Indication: MULTIPLE SCLEROSIS
     Route: 042
     Dates: start: 20050223, end: 20050223

REACTIONS (5)
  - PYREXIA [None]
  - DYSPHAGIA [None]
  - CHILLS [None]
  - HYPERSENSITIVITY [None]
  - DRUG SPECIFIC ANTIBODY PRESENT [None]
